FAERS Safety Report 17760281 (Version 1)
Quarter: 2020Q2

REPORT INFORMATION
  Report Type: Spontaneous
  Country: US (occurrence: US)
  Receive Date: 20200508
  Receipt Date: 20200508
  Transmission Date: 20200714
  Serious: Yes (Hospitalization)
  Sender: FDA-Public Use
  Company Number: None

PATIENT
  Sex: Male

DRUGS (8)
  1. SPIRONOLACT [Concomitant]
     Active Substance: SPIRONOLACTONE
  2. MERCAPTOPURINE. [Concomitant]
     Active Substance: MERCAPTOPURINE
  3. BUPROPN [Concomitant]
  4. ZOLPIDEM [Concomitant]
     Active Substance: ZOLPIDEM TARTRATE
  5. ESOMEPRA [Concomitant]
     Active Substance: ESOMEPRAZOLE
  6. MESALAMINE. [Concomitant]
     Active Substance: MESALAMINE
  7. HUMIRA [Suspect]
     Active Substance: ADALIMUMAB
     Indication: CROHN^S DISEASE
     Dosage: ?          OTHER FREQUENCY:QOW;?
     Route: 058
     Dates: start: 20160106
  8. DIAZEPAM. [Concomitant]
     Active Substance: DIAZEPAM

REACTIONS (1)
  - Ascites [None]
